FAERS Safety Report 5366356-0 (Version None)
Quarter: 2007Q2

REPORT INFORMATION
  Report Type: 
  Country: None (occurrence: None)
  Receive Date: 20070620
  Receipt Date: 20070620
  Transmission Date: 20071010
  Serious: Yes (Other)
  Sender: FDA-Public Use
  Company Number: None

PATIENT
  Age: 5 Month
  Sex: Male
  Weight: 6.3504 kg

DRUGS (1)
  1. KENALOG [Suspect]
     Indication: UPPER RESPIRATORY TRACT INFECTION
     Dosage: 10 MG 1 X
     Dates: start: 20070321, end: 20070321

REACTIONS (2)
  - INJECTION SITE REACTION [None]
  - MUSCLE ATROPHY [None]
